FAERS Safety Report 13031361 (Version 1)
Quarter: 2016Q4

REPORT INFORMATION
  Report Type: Spontaneous
  Country: US (occurrence: US)
  Receive Date: 20161215
  Receipt Date: 20161215
  Transmission Date: 20170207
  Serious: Yes (Other)
  Sender: FDA-Public Use
  Company Number: US-SA-2016SA140893

PATIENT
  Age: 75 Year
  Sex: Female

DRUGS (2)
  1. FERRLECIT [Suspect]
     Active Substance: SODIUM FERRIC GLUCONATE COMPLEX
     Indication: IRON DEFICIENCY ANAEMIA
     Dosage: FORM: INFUSION
     Route: 065
     Dates: start: 201607
  2. IRON SUCROSE [Concomitant]
     Active Substance: IRON SUCROSE
     Dosage: 5 INFUSIONS
     Dates: start: 201512

REACTIONS (3)
  - Hyperhidrosis [Recovered/Resolved]
  - Dizziness [Recovered/Resolved]
  - Dyspnoea [Recovered/Resolved]
